FAERS Safety Report 9436890 (Version 1)
Quarter: 2013Q3

REPORT INFORMATION
  Report Type: Spontaneous
  Country: US (occurrence: US)
  Receive Date: 20130802
  Receipt Date: 20130802
  Transmission Date: 20140515
  Serious: No
  Sender: FDA-Public Use
  Company Number: US-PFIZER INC-2013225172

PATIENT
  Age: 65 Year
  Sex: Female
  Weight: 81.63 kg

DRUGS (4)
  1. LYRICA [Suspect]
     Indication: DIABETIC NEUROPATHY
     Dosage: 150 MG, 3X/DAY
     Dates: start: 2011, end: 20130728
  2. HYDROCODONE W/ACETAMINOPHEN [Concomitant]
     Dosage: [ACETAMINOPHEN 5MG]/ [HYDROCODONE 325MG] 2 TABLETS 2X/DAY
  3. OMEPRAZOLE [Concomitant]
     Dosage: 40 MG, 1X/DAY
  4. FLUOXETINE [Concomitant]
     Dosage: 40 MG, 1X/DAY

REACTIONS (6)
  - Diarrhoea [Not Recovered/Not Resolved]
  - Nausea [Not Recovered/Not Resolved]
  - Vomiting [Not Recovered/Not Resolved]
  - Chills [Not Recovered/Not Resolved]
  - Lethargy [Not Recovered/Not Resolved]
  - Rhinorrhoea [Not Recovered/Not Resolved]
